FAERS Safety Report 5972762-3 (Version None)
Quarter: 2008Q4

REPORT INFORMATION
  Report Type: 
  Country: None (occurrence: None)
  Receive Date: 20081126
  Receipt Date: 20081126
  Transmission Date: 20090506
  Serious: Yes (Hospitalization)
  Sender: FDA-Public Use
  Company Number: None

PATIENT
  Age: 75 Year
  Sex: Female
  Weight: 128 kg

DRUGS (1)
  1. WARFARIN SODIUM [Suspect]
     Dosage: 3MG DAILY PO
     Route: 048

REACTIONS (4)
  - ABNORMAL FAECES [None]
  - FAECES DISCOLOURED [None]
  - HAEMORRHAGE [None]
  - INTERNATIONAL NORMALISED RATIO INCREASED [None]
